FAERS Safety Report 7789057-8 (Version None)
Quarter: 2011Q3

REPORT INFORMATION
  Report Type: 
  Country: None (occurrence: None)
  Receive Date: 20110930
  Receipt Date: 20110919
  Transmission Date: 20111222
  Serious: Yes (Hospitalization)
  Sender: FDA-Public Use
  Company Number: FR-SANOFI-AVENTIS-2011SA060700

PATIENT
  Age: 76 Year
  Sex: Male

DRUGS (9)
  1. LASIX [Suspect]
     Route: 048
  2. PREVISCAN [Concomitant]
     Indication: THROMBOSIS PROPHYLAXIS
     Route: 048
  3. ESOMEPRAZOLE SODIUM [Concomitant]
     Route: 048
  4. LEVOTHYROXINE SODIUM [Concomitant]
     Route: 048
  5. VALSARTAN  AND HYDROCHLOROTHIAZIDE [Suspect]
     Dosage: DOSE:1 UNIT(S)
     Route: 048
  6. DIGOXIN [Concomitant]
     Route: 048
  7. NITRODERM [Concomitant]
     Route: 062
  8. MODOPAR [Concomitant]
     Dosage: DOSE:1 UNIT(S)
     Route: 048
     Dates: start: 20110701, end: 20110805
  9. POTASSIUM CHLORIDE [Concomitant]
     Route: 048

REACTIONS (3)
  - HYPOKALAEMIA [None]
  - DIARRHOEA [None]
  - RENAL FAILURE [None]
